FAERS Safety Report 6062282-2 (Version None)
Quarter: 2009Q1

REPORT INFORMATION
  Report Type: 
  Country: None (occurrence: None)
  Receive Date: 20090203
  Receipt Date: 20090202
  Transmission Date: 20090719
  Serious: Yes (Other)
  Sender: FDA-Public Use
  Company Number: ES-BRISTOL-MYERS SQUIBB COMPANY-14490080

PATIENT
  Age: 46 Year
  Sex: Male

DRUGS (3)
  1. SUSTIVA [Suspect]
     Indication: HIV INFECTION
     Dates: start: 20000112, end: 20010312
  2. STAVUDINE [Suspect]
     Indication: HIV INFECTION
     Dates: start: 20000112, end: 20010312
  3. LAMIVUDINE [Suspect]
     Indication: HIV INFECTION
     Dates: start: 20000112, end: 20010312

REACTIONS (4)
  - ALANINE AMINOTRANSFERASE INCREASED [None]
  - ASPARTATE AMINOTRANSFERASE INCREASED [None]
  - DRUG RESISTANCE [None]
  - TRANSAMINASES INCREASED [None]
